FAERS Safety Report 4411304-0 (Version None)
Quarter: 2004Q2

REPORT INFORMATION
  Report Type: 
  Country: None (occurrence: None)
  Receive Date: 20040630
  Receipt Date: 20040503
  Transmission Date: 20050107
  Serious: No
  Sender: FDA-Public Use
  Company Number: 04P-163-0259454-00

PATIENT
  Age: 60 Year
  Sex: Female
  Weight: 56.246 kg

DRUGS (9)
  1. HUMIRA [Suspect]
     Indication: RHEUMATOID ARTHRITIS
     Dosage: 40 MG, 1 IN 2 WK, SUBCUTANEOUS
     Route: 058
     Dates: start: 20040408
  2. BISMUTH SUBSALICYLATE [Concomitant]
  3. CELECOXIB [Concomitant]
  4. LEFLUNOMIDE [Concomitant]
  5. MULTIVITAMIN [Concomitant]
  6. FISH OIL [Concomitant]
  7. CQ10 [Concomitant]
  8. PRIMROSE OIL [Concomitant]
  9. GLUCOSAMINE [Concomitant]

REACTIONS (9)
  - COUGH [None]
  - DIARRHOEA [None]
  - FEELING ABNORMAL [None]
  - FLATULENCE [None]
  - INJECTION SITE ERYTHEMA [None]
  - MUSCLE CRAMP [None]
  - NAUSEA [None]
  - PAIN [None]
  - PARANASAL SINUS HYPERSECRETION [None]
